FAERS Safety Report 24244965 (Version 1)
Quarter: 2024Q3

REPORT INFORMATION
  Report Type: Spontaneous
  Country: US (occurrence: None)
  Receive Date: 20240823
  Receipt Date: 20240823
  Transmission Date: 20241017
  Serious: No
  Sender: Public
  Company Number: None

PATIENT

DRUGS (2)
  1. GLIMEPIRIDE\METFORMIN [Suspect]
     Active Substance: GLIMEPIRIDE\METFORMIN
  2. INSULIN HUMAN [Suspect]
     Active Substance: INSULIN HUMAN

REACTIONS (9)
  - Abdominal discomfort [None]
  - Underdose [None]
  - Hyperglycaemia [None]
  - Hyperglycaemic hyperosmolar nonketotic syndrome [None]
  - Hyperkalaemia [None]
  - Hypersensitivity [None]
  - Wrong product administered [None]
  - Product prescribing issue [None]
  - Incorrect dose administered [None]
